FAERS Safety Report 4368764-3 (Version None)
Quarter: 2004Q2

REPORT INFORMATION
  Report Type: 
  Country: None (occurrence: None)
  Receive Date: 20040528
  Receipt Date: 20040519
  Transmission Date: 20050107
  Serious: Yes (Death, Hospitalization)
  Sender: FDA-Public Use
  Company Number: 2004033320

PATIENT
  Age: 89 Year
  Sex: Male

DRUGS (2)
  1. ZYRTEC [Suspect]
     Indication: PRURITUS
     Dosage: ORAL
     Route: 048
     Dates: start: 20040418, end: 20040420
  2. PHENPROCOUMON (PHENPROCOUMON) [Concomitant]

REACTIONS (4)
  - AUTOIMMUNE THROMBOCYTOPENIA [None]
  - GASTRIC HAEMORRHAGE [None]
  - MOUTH HAEMORRHAGE [None]
  - SKIN BLEEDING [None]
